FAERS Safety Report 7755211-4 (Version None)
Quarter: 2011Q3

REPORT INFORMATION
  Report Type: 
  Country: None (occurrence: None)
  Receive Date: 20110914
  Receipt Date: 20110901
  Transmission Date: 20111222
  Serious: Yes (Other)
  Sender: FDA-Public Use
  Company Number: GB-006213

PATIENT
  Age: 12 Year
  Sex: Female

DRUGS (3)
  1. DESFERRIOXAMINE (DEFEROXAMINE MESILATE) [Concomitant]
  2. SOMATROPIN (SOMATROPIN) INJECTION [Suspect]
     Indication: BODY HEIGHT BELOW NORMAL
     Dates: start: 20010101
  3. CORTICOSTEROIDS (CORTICOSTEROIDS) [Concomitant]

REACTIONS (3)
  - METASTASES TO LUNG [None]
  - OSTEOSARCOMA METASTATIC [None]
  - SEPSIS [None]
